FAERS Safety Report 14255539 (Version 1)
Quarter: 2017Q4

REPORT INFORMATION
  Report Type: Spontaneous
  Country: US (occurrence: None)
  Receive Date: 20171206
  Receipt Date: 20171206
  Transmission Date: 20180321
  Serious: Yes (Disabling, Other)
  Sender: FDA-Public Use
  Company Number: None

PATIENT
  Age: 57 Year
  Sex: Female
  Weight: 130.64 kg

DRUGS (6)
  1. SPRING VALLEY CALCIUM WITH VITAMIN D3 [Concomitant]
  2. EQUATE FIBER POWDER (COMPARE TO BENEFIBER) [Suspect]
     Active Substance: STARCH, WHEAT
     Indication: BOWEL MOVEMENT IRREGULARITY
     Dosage: STRENGTH - 2 TBSP DAILY?DOSE AMOUNT - 2 TBSP TOTAL DAILY?FREQUENCY - 2 TBSP 3 X DAY
     Route: 048
     Dates: end: 20171120
  3. DEXTRIN\WHEAT [Suspect]
     Active Substance: ICODEXTRIN\WHEAT
  4. EQUATE COMPLETE MULTIVITAMIN FOR OVER 50 [Concomitant]
  5. SPRING VALLEY VITAMIN C [Concomitant]
  6. SPRING VALLEY PRENATAL MULTIVITAMIN/MINERALS [Concomitant]

REACTIONS (5)
  - Confusional state [None]
  - Product label issue [None]
  - Intestinal angioedema [None]
  - Dyspnoea [None]
  - Nausea [None]
